FAERS Safety Report 5528676-6 (Version None)
Quarter: 2007Q4

REPORT INFORMATION
  Report Type: 
  Country: None (occurrence: None)
  Receive Date: 20071129
  Receipt Date: 20071128
  Transmission Date: 20080405
  Serious: Yes (Hospitalization)
  Sender: FDA-Public Use
  Company Number: AU-BRISTOL-MYERS SQUIBB COMPANY-13997143

PATIENT
  Age: 49 Year
  Sex: Male

DRUGS (5)
  1. AVAPRO [Suspect]
     Indication: ESSENTIAL HYPERTENSION
     Route: 048
  2. INDOCIN [Suspect]
     Route: 048
     Dates: start: 20060306, end: 20060320
  3. ACETAMINOPHEN W/ CODEINE [Concomitant]
     Route: 048
  4. ALBUTEROL [Concomitant]
     Route: 055
  5. FLIXOTIDE [Concomitant]
     Route: 055

REACTIONS (2)
  - GASTROINTESTINAL HAEMORRHAGE [None]
  - RENAL IMPAIRMENT [None]
